FAERS Safety Report 16379336 (Version 2)
Quarter: 2019Q2

REPORT INFORMATION
  Report Type: Report from Study
  Country: PA (occurrence: PA)
  Receive Date: 20190531
  Receipt Date: 20190619
  Transmission Date: 20190711
  Serious: Yes (Other)
  Sender: FDA-Public Use
  Company Number: PHHY2019PA038643

PATIENT
  Age: 47 Year
  Sex: Male

DRUGS (3)
  1. COD LIVER OIL [Concomitant]
     Active Substance: COD LIVER OIL
     Indication: PRODUCT USED FOR UNKNOWN INDICATION
     Dosage: 1 DF, QD
     Route: 048
     Dates: start: 201901
  2. MAGNESIUM [Concomitant]
     Active Substance: MAGNESIUM
     Indication: PRODUCT USED FOR UNKNOWN INDICATION
     Dosage: 1 DF, QD
     Route: 048
  3. GILENYA [Suspect]
     Active Substance: FINGOLIMOD HYDROCHLORIDE
     Indication: RELAPSING-REMITTING MULTIPLE SCLEROSIS
     Dosage: 0.5 MG, QD
     Route: 048

REACTIONS (12)
  - Malaise [Unknown]
  - Multiple sclerosis relapse [Unknown]
  - Eye pain [Unknown]
  - Depression [Unknown]
  - Memory impairment [Unknown]
  - Apathy [Unknown]
  - Fatigue [Unknown]
  - Insomnia [Unknown]
  - Dysstasia [Recovering/Resolving]
  - Sleep disorder [Unknown]
  - Asthenia [Unknown]
  - Paralysis [Unknown]
